FAERS Safety Report 24150316 (Version 3)
Quarter: 2025Q1

REPORT INFORMATION
  Report Type: Other
  Country: US (occurrence: US)
  Receive Date: 20240730
  Receipt Date: 20250109
  Transmission Date: 20250409
  Serious: Yes (Other)
  Sender: RHYTHM PHARMACEUTICALS, INC.
  Company Number: US-Rhythm Pharmaceuticals, Inc.-2023RHM000224

PATIENT
  Age: 10 Year
  Sex: Male

DRUGS (16)
  1. IMCIVREE [Suspect]
     Active Substance: SETMELANOTIDE
     Indication: Laurence-Moon-Bardet-Biedl syndrome
     Route: 058
  2. IMCIVREE [Suspect]
     Active Substance: SETMELANOTIDE
     Route: 058
  3. IMCIVREE [Suspect]
     Active Substance: SETMELANOTIDE
     Route: 058
  4. IMCIVREE [Suspect]
     Active Substance: SETMELANOTIDE
     Route: 058
  5. IMCIVREE [Suspect]
     Active Substance: SETMELANOTIDE
     Route: 058
  6. IMCIVREE [Suspect]
     Active Substance: SETMELANOTIDE
     Route: 058
  7. ALBUTEROL [Concomitant]
     Active Substance: ALBUTEROL
     Indication: Product used for unknown indication
     Route: 065
  8. BUDESONIDE [Concomitant]
     Active Substance: BUDESONIDE
     Indication: Product used for unknown indication
     Route: 065
  9. CARVEDILOL [Concomitant]
     Active Substance: CARVEDILOL
     Indication: Product used for unknown indication
     Route: 065
  10. CETIRIZINE [Concomitant]
     Active Substance: CETIRIZINE HYDROCHLORIDE
     Indication: Product used for unknown indication
     Route: 065
  11. DEXTROAMPHETAMINE [Concomitant]
     Active Substance: DEXTROAMPHETAMINE
     Indication: Product used for unknown indication
     Route: 065
  12. FLUTICASONE [Concomitant]
     Active Substance: FLUTICASONE
     Indication: Product used for unknown indication
     Route: 065
  13. MONTELUKAST [Concomitant]
     Active Substance: MONTELUKAST
     Indication: Product used for unknown indication
     Route: 065
  14. NIFEDIPINE [Concomitant]
     Active Substance: NIFEDIPINE
     Indication: Product used for unknown indication
     Route: 065
  15. OZEMPIC [Concomitant]
     Active Substance: SEMAGLUTIDE
     Indication: Product used for unknown indication
     Route: 065
  16. VITAMIN D3 [Concomitant]
     Active Substance: CHOLECALCIFEROL
     Indication: Product used for unknown indication
     Route: 065

REACTIONS (14)
  - Diarrhoea haemorrhagic [Unknown]
  - Abdominal discomfort [Recovered/Resolved]
  - Product dose omission issue [Recovered/Resolved]
  - Malaise [Unknown]
  - Intentional product use issue [Unknown]
  - Inappropriate schedule of product administration [Not Recovered/Not Resolved]
  - Initial insomnia [Not Recovered/Not Resolved]
  - Product dose omission in error [Not Recovered/Not Resolved]
  - Skin hyperpigmentation [Not Recovered/Not Resolved]
  - Diarrhoea [Recovered/Resolved]
  - Vomiting [Unknown]
  - Headache [Recovered/Resolved]
  - Injection site nodule [Recovered/Resolved]
  - Abdominal pain upper [Recovered/Resolved]

NARRATIVE: CASE EVENT DATE: 20230526
